FAERS Safety Report 6127346-3 (Version None)
Quarter: 2009Q1

REPORT INFORMATION
  Report Type: 
  Country: None (occurrence: None)
  Receive Date: 20090319
  Receipt Date: 20090305
  Transmission Date: 20090719
  Serious: Yes (Death, Hospitalization)
  Sender: FDA-Public Use
  Company Number: 2009AL000153

PATIENT
  Age: 33 Year
  Sex: Female

DRUGS (8)
  1. DIGOXIN [Suspect]
     Dosage: 0.125MG, PO
     Route: 048
  2. ATENOLOL [Concomitant]
  3. LAMICTAL [Concomitant]
  4. PREVACID [Concomitant]
  5. SULFA [Concomitant]
  6. DEPAKOTE [Concomitant]
  7. RISPERDAL [Concomitant]
  8. THYROID TAB [Concomitant]

REACTIONS (14)
  - ABNORMAL BEHAVIOUR [None]
  - ANAEMIA [None]
  - ARRHYTHMIA [None]
  - ATRIOVENTRICULAR BLOCK FIRST DEGREE [None]
  - CARDIO-RESPIRATORY ARREST [None]
  - CONFUSIONAL STATE [None]
  - DRUG TOXICITY [None]
  - ENCEPHALOPATHY [None]
  - GAIT DISTURBANCE [None]
  - ILL-DEFINED DISORDER [None]
  - PLEURAL EFFUSION [None]
  - RENAL FAILURE [None]
  - SEPSIS [None]
  - SOMNOLENCE [None]
